FAERS Safety Report 7387440-6 (Version None)
Quarter: 2011Q1

REPORT INFORMATION
  Report Type: 
  Country: None (occurrence: None)
  Receive Date: 20110331
  Receipt Date: 20110328
  Transmission Date: 20110831
  Serious: No
  Sender: FDA-Public Use
  Company Number: US-ELI_LILLY_AND_COMPANY-US201101007236

PATIENT
  Sex: Female
  Weight: 20.4 kg

DRUGS (3)
  1. SYNTHROID [Concomitant]
     Dosage: 0.05 MG, QD
  2. HUMATROPE [Suspect]
     Indication: DWARFISM
     Dosage: 0.5 MG, QD
     Route: 058
     Dates: start: 20100901, end: 20110106
  3. HYDROCORTISONE [Concomitant]
     Dosage: 5 MG, BID

REACTIONS (1)
  - PYREXIA [None]
